FAERS Safety Report 25094374 (Version 2)
Quarter: 2025Q2

REPORT INFORMATION
  Report Type: Report from Study
  Country: US (occurrence: US)
  Receive Date: 20250319
  Receipt Date: 20250609
  Transmission Date: 20250717
  Serious: Yes (Other)
  Sender: BAYER HEALTHCARE PHARMACEUTICALS INC.
  Company Number: US-BAYER-2025A033469

PATIENT
  Age: 68 Year
  Sex: Female
  Weight: 68.027 kg

DRUGS (13)
  1. ADEMPAS [Suspect]
     Active Substance: RIOCIGUAT
     Indication: Pulmonary arterial hypertension
     Route: 048
     Dates: start: 20250307
  2. ADEMPAS [Suspect]
     Active Substance: RIOCIGUAT
     Indication: Pulmonary arterial hypertension
     Dosage: 2.5 MG, TID
     Route: 048
  3. ADEMPAS [Suspect]
     Active Substance: RIOCIGUAT
     Indication: Pulmonary arterial hypertension
     Dosage: 1.5 MG, TID
     Route: 048
  4. ADEMPAS [Suspect]
     Active Substance: RIOCIGUAT
     Indication: Pulmonary arterial hypertension
     Dosage: 1 MG, TID
     Route: 048
  5. MOUNJARO [Suspect]
     Active Substance: TIRZEPATIDE
  6. LEVOTHYROXINE SODIUM [Concomitant]
     Active Substance: LEVOTHYROXINE SODIUM
  7. TERBINAFINE HYDROCHLORIDE [Concomitant]
     Active Substance: TERBINAFINE HYDROCHLORIDE
  8. PROTONIX [Concomitant]
     Active Substance: PANTOPRAZOLE SODIUM
  9. ELIQUIS [Concomitant]
     Active Substance: APIXABAN
  10. DESVENLAFAXINE [Concomitant]
     Active Substance: DESVENLAFAXINE
  11. MAGNESIUM [Concomitant]
     Active Substance: MAGNESIUM
  12. ONDANSETRON [Concomitant]
     Active Substance: ONDANSETRON
  13. ACETAMINOPHEN [Concomitant]
     Active Substance: ACETAMINOPHEN

REACTIONS (14)
  - Weight decreased [None]
  - Blood pressure systolic decreased [None]
  - Hypotension [None]
  - Fall [None]
  - Head injury [None]
  - Eye contusion [None]
  - Contusion [None]
  - Somnolence [None]
  - Vertigo [None]
  - Dysstasia [None]
  - Pruritus [None]
  - Concussion [None]
  - Gait inability [None]
  - Fall [None]

NARRATIVE: CASE EVENT DATE: 20240101
